FAERS Safety Report 13975919 (Version 1)
Quarter: 2017Q3

REPORT INFORMATION
  Report Type: Report from Study
  Country: US (occurrence: US)
  Receive Date: 20170914
  Receipt Date: 20170914
  Transmission Date: 20171128
  Serious: No
  Sender: FDA-Public Use
  Company Number: US-TARO-2016TAR00668

PATIENT
  Sex: Female

DRUGS (1)
  1. CLOTRIMAZOLE TOPICAL SOLUTION USP 1% [Suspect]
     Active Substance: CLOTRIMAZOLE
     Indication: RASH
     Dosage: UNK
     Route: 031
     Dates: start: 20160728, end: 20160728

REACTIONS (4)
  - Visual field defect [Unknown]
  - Accidental exposure to product [Recovered/Resolved]
  - Wrong drug administered [Recovered/Resolved]
  - Ocular hyperaemia [Unknown]

NARRATIVE: CASE EVENT DATE: 20160728
